FAERS Safety Report 10729850 (Version 9)
Quarter: 2016Q4

REPORT INFORMATION
  Report Type: Spontaneous
  Country: CA (occurrence: CA)
  Receive Date: 20150122
  Receipt Date: 20161223
  Transmission Date: 20170206
  Serious: Yes (Hospitalization, Other)
  Sender: FDA-Public Use
  Company Number: CA-GLAXOSMITHKLINE-CA2014GSK008203

PATIENT
  Age: 63 Year
  Sex: Female

DRUGS (14)
  1. BENLYSTA [Suspect]
     Active Substance: BELIMUMAB
     Indication: SYSTEMIC LUPUS ERYTHEMATOSUS
     Dosage: 1270 MG, Z
     Route: 042
     Dates: start: 20130404
  2. BENLYSTA [Suspect]
     Active Substance: BELIMUMAB
     Dosage: 1250 MG, Z
     Route: 042
     Dates: start: 20130404
  3. BENLYSTA [Suspect]
     Active Substance: BELIMUMAB
     Dosage: 1300 MG, UNK
     Route: 042
     Dates: start: 20160224
  4. MYLAN BUPROPION (CHLORHYDRATE DE BUPROPIONE) [Concomitant]
     Indication: PRODUCT USED FOR UNKNOWN INDICATION
     Dosage: 150 MG, UNK
  5. LANSOPRAZOLE. [Concomitant]
     Active Substance: LANSOPRAZOLE
     Indication: PRODUCT USED FOR UNKNOWN INDICATION
     Dosage: 30 MG, UNK
  6. PREDNISONE. [Concomitant]
     Active Substance: PREDNISONE
     Indication: PRODUCT USED FOR UNKNOWN INDICATION
     Dosage: 10 MG, UNK
  7. FUROSEMIDE. [Concomitant]
     Active Substance: FUROSEMIDE
     Indication: PRODUCT USED FOR UNKNOWN INDICATION
     Dosage: 20 MG, UNK
  8. CITALOPRAM [Concomitant]
     Active Substance: CITALOPRAM HYDROBROMIDE
     Indication: PRODUCT USED FOR UNKNOWN INDICATION
     Dosage: 20 MG, UNK
  9. BENLYSTA [Suspect]
     Active Substance: BELIMUMAB
     Dosage: 1270 MG, UNK
     Route: 042
     Dates: start: 20160107
  10. TELMISARTAN. [Concomitant]
     Active Substance: TELMISARTAN
     Indication: PRODUCT USED FOR UNKNOWN INDICATION
     Dosage: 40 MG, UNK
  11. FERROUS SULFATE. [Concomitant]
     Active Substance: FERROUS SULFATE
     Indication: ANAEMIA
     Dosage: UNK
  12. PREGABALIN. [Concomitant]
     Active Substance: PREGABALIN
     Indication: PRODUCT USED FOR UNKNOWN INDICATION
     Dosage: UNK
  13. EURO-K [Concomitant]
     Indication: PRODUCT USED FOR UNKNOWN INDICATION
     Dosage: 1500 MG, UNK
  14. CALCIUM SUPPLEMENT [Concomitant]
     Active Substance: CALCIUM

REACTIONS (9)
  - Cough [Not Recovered/Not Resolved]
  - Sinusitis [Unknown]
  - Hospitalisation [Unknown]
  - Influenza [Unknown]
  - Nonspecific reaction [Unknown]
  - Pneumonia [Not Recovered/Not Resolved]
  - Influenza like illness [Unknown]
  - Drug dose omission [Unknown]
  - Bronchitis [Not Recovered/Not Resolved]

NARRATIVE: CASE EVENT DATE: 201601
